FAERS Safety Report 20236487 (Version 1)
Quarter: 2021Q4

REPORT INFORMATION
  Report Type: Spontaneous
  Country: JP (occurrence: JP)
  Receive Date: 20211228
  Receipt Date: 20211228
  Transmission Date: 20220303
  Serious: Yes (Other)
  Sender: FDA-Public Use
  Company Number: JP-MTPC-MTPC2021-0032233

PATIENT
  Age: 5 Decade
  Sex: Female

DRUGS (7)
  1. REMICADE [Suspect]
     Active Substance: INFLIXIMAB
     Indication: Rheumatoid arthritis
     Dosage: 3 MILLIGRAM/KILOGRAM, QD
     Route: 042
  2. REMICADE [Suspect]
     Active Substance: INFLIXIMAB
     Dosage: 3 MILLIGRAM/KILOGRAM, QD
     Route: 041
  3. RHEUMATREX [Suspect]
     Active Substance: METHOTREXATE SODIUM
     Indication: Rheumatoid arthritis
     Dosage: 6 MILLIGRAM, 1/WEEK
     Route: 048
  4. RHEUMATREX [Suspect]
     Active Substance: METHOTREXATE SODIUM
     Dosage: 7 MILLIGRAM, 1/WEEK
     Route: 048
  5. SULFASALAZINE [Concomitant]
     Active Substance: SULFASALAZINE
     Dosage: 1000 MILLIGRAM, QD
     Route: 065
  6. TOCILIZUMAB [Concomitant]
     Active Substance: TOCILIZUMAB
     Dosage: 8 MILLIGRAM/KILOGRAM, Q4WEEKS
     Route: 065
  7. IGURATIMOD [Concomitant]
     Active Substance: IGURATIMOD
     Dosage: 50 MILLIGRAM, QD
     Route: 065

REACTIONS (1)
  - Lymphoma [Recovered/Resolved]
